FAERS Safety Report 4302572-4 (Version None)
Quarter: 2004Q1

REPORT INFORMATION
  Report Type: 
  Country: None (occurrence: None)
  Receive Date: 20040224
  Receipt Date: 20040216
  Transmission Date: 20041129
  Serious: Yes (Hospitalization)
  Sender: FDA-Public Use
  Company Number: 200410637FR

PATIENT
  Age: 76 Year
  Sex: Male
  Weight: 56 kg

DRUGS (5)
  1. DAONIL [Suspect]
     Indication: DIABETES MELLITUS NON-INSULIN-DEPENDENT
     Dosage: DOSE UNIT: UNITS
     Route: 048
     Dates: start: 20010101, end: 20031123
  2. EPREX [Concomitant]
     Indication: REFRACTORY ANAEMIA
     Route: 058
     Dates: start: 20030316
  3. GRANOCYTE [Concomitant]
     Indication: REFRACTORY ANAEMIA
     Route: 058
     Dates: start: 20030321
  4. NEURONTIN [Concomitant]
     Route: 048
     Dates: end: 20030101
  5. MOPRAL [Concomitant]
     Route: 048

REACTIONS (5)
  - HEPATIC STEATOSIS [None]
  - HEPATITIS [None]
  - HEPATOCELLULAR DAMAGE [None]
  - HEPATOMEGALY [None]
  - REFRACTORY ANAEMIA WITH RINGED SIDEROBLASTS [None]
